FAERS Safety Report 19193950 (Version 1)
Quarter: 2021Q2

REPORT INFORMATION
  Report Type: Spontaneous
  Country: US (occurrence: US)
  Receive Date: 20210428
  Receipt Date: 20210428
  Transmission Date: 20210717
  Serious: Yes (Other)
  Sender: FDA-Public Use
  Company Number: None

PATIENT
  Age: 4 Year
  Sex: Female
  Weight: 18.9 kg

DRUGS (1)
  1. MOLLUSCUM AWAY [Suspect]
     Active Substance: HERBALS
     Indication: MOLLUSCUM CONTAGIOSUM
     Dosage: ?          OTHER STRENGTH:PATCH;QUANTITY:9 PATCH(ES);?
     Route: 062

REACTIONS (4)
  - Pain [None]
  - Rash erythematous [None]
  - Pruritus [None]
  - Scar [None]

NARRATIVE: CASE EVENT DATE: 20210309
